FAERS Safety Report 22803431 (Version 3)
Quarter: 2024Q1

REPORT INFORMATION
  Report Type: Spontaneous
  Country: CA (occurrence: CA)
  Receive Date: 20230809
  Receipt Date: 20240209
  Transmission Date: 20240410
  Serious: Yes (Death, Life-Threatening, Hospitalization, Disabling, Other)
  Sender: FDA-Public Use
  Company Number: CA-BAYER-2023A108686

PATIENT
  Age: 50 Year
  Sex: Female

DRUGS (40)
  1. ALEVE [Suspect]
     Active Substance: NAPROXEN SODIUM
     Indication: Product used for unknown indication
     Dosage: 500 MG, QD
  2. CALCIUM [Suspect]
     Active Substance: CALCIUM
     Indication: Product used for unknown indication
  3. FOLIC ACID [Suspect]
     Active Substance: FOLIC ACID
     Indication: Product used for unknown indication
     Dosage: 50 MG
     Route: 048
  4. FOLIC ACID [Suspect]
     Active Substance: FOLIC ACID
     Indication: Rheumatoid arthritis
     Dosage: 1 MG
  5. FOLIC ACID [Suspect]
     Active Substance: FOLIC ACID
     Indication: Product used for unknown indication
     Dosage: 25 MG
  6. FOLIC ACID [Suspect]
     Active Substance: FOLIC ACID
     Indication: Product used for unknown indication
     Dosage: 5 MG
  7. FOLIC ACID [Suspect]
     Active Substance: FOLIC ACID
     Indication: Product used for unknown indication
     Dosage: 0.5 MG
  8. COSENTYX [Suspect]
     Active Substance: SECUKINUMAB
     Indication: Rheumatoid arthritis
     Route: 005
  9. COSENTYX [Suspect]
     Active Substance: SECUKINUMAB
     Indication: Psoriatic arthropathy
  10. LEFLUNOMIDE [Suspect]
     Active Substance: LEFLUNOMIDE
     Indication: Rheumatoid arthritis
     Dosage: 20 MG, QD
     Route: 048
  11. ASCORBIC ACID [Suspect]
     Active Substance: ASCORBIC ACID
     Indication: Product used for unknown indication
  12. HYDROXYCHLOROQUINE SULFATE [Suspect]
     Active Substance: HYDROXYCHLOROQUINE SULFATE
     Indication: Rheumatoid arthritis
     Dosage: 400 MG, QD
     Route: 058
  13. HYDROXYCHLOROQUINE SULFATE [Suspect]
     Active Substance: HYDROXYCHLOROQUINE SULFATE
     Indication: Systemic lupus erythematosus
  14. NAPROXEN [Suspect]
     Active Substance: NAPROXEN
     Indication: Rheumatoid arthritis
     Dosage: 500 MG
  15. CORTISONE [Suspect]
     Active Substance: CORTISONE
     Indication: Rheumatoid arthritis
  16. KEVZARA [Suspect]
     Active Substance: SARILUMAB
     Indication: Rheumatoid arthritis
  17. HYDROCORTISONE BUTYRATE [Suspect]
     Active Substance: HYDROCORTISONE BUTYRATE
     Indication: Rheumatoid arthritis
     Route: 048
  18. HYDROXYCHLOROQUINE [Suspect]
     Active Substance: HYDROXYCHLOROQUINE
     Indication: Rheumatoid arthritis
     Dosage: 400 MG, QD
     Route: 005
  19. OXYCODONE [Suspect]
     Active Substance: OXYCODONE\OXYCODONE HYDROCHLORIDE
     Indication: Product used for unknown indication
  20. ALENDRONIC ACID [Suspect]
     Active Substance: ALENDRONIC ACID
     Indication: Rheumatoid arthritis
  21. PHTHALYLSULFATHIAZOLE [Suspect]
     Active Substance: PHTHALYLSULFATHIAZOLE
     Indication: Product used for unknown indication
     Dosage: 500 MG
     Route: 048
  22. QUETIAPINE [Suspect]
     Active Substance: QUETIAPINE
     Indication: Product used for unknown indication
  23. ACTEMRA [Suspect]
     Active Substance: TOCILIZUMAB
     Indication: Rheumatoid arthritis
     Route: 058
  24. ACTEMRA [Suspect]
     Active Substance: TOCILIZUMAB
     Indication: Rheumatoid arthritis
     Dosage: 20 MG
     Route: 016
  25. PSEUDOEPHEDRINE [Suspect]
     Active Substance: PSEUDOEPHEDRINE
     Indication: Rheumatoid arthritis
     Dosage: 25 MG
  26. HUMIRA [Suspect]
     Active Substance: ADALIMUMAB
     Indication: Rheumatoid arthritis
     Dosage: 40 MG
     Route: 058
  27. HUMIRA [Suspect]
     Active Substance: ADALIMUMAB
     Indication: Psoriatic arthropathy
  28. PREDNISONE [Suspect]
     Active Substance: PREDNISONE
     Indication: Synovitis
     Dosage: 5 MG
  29. PREDNISONE [Suspect]
     Active Substance: PREDNISONE
     Indication: Bursitis
  30. PREDNISONE [Suspect]
     Active Substance: PREDNISONE
     Indication: Inflammation
  31. PREDNISONE [Suspect]
     Active Substance: PREDNISONE
     Indication: Psoriatic arthropathy
  32. PREDNISONE [Suspect]
     Active Substance: PREDNISONE
     Indication: Rheumatoid arthritis
  33. PREDNISONE [Suspect]
     Active Substance: PREDNISONE
     Indication: Systemic lupus erythematosus
  34. CETIRIZINE [Suspect]
     Active Substance: CETIRIZINE HYDROCHLORIDE
     Indication: Rheumatoid arthritis
     Dosage: 10 MG
     Route: 048
  35. ORENCIA [Suspect]
     Active Substance: ABATACEPT
     Indication: Rheumatoid arthritis
     Route: 042
  36. ORENCIA [Suspect]
     Active Substance: ABATACEPT
     Indication: Psoriatic arthropathy
  37. CETIRIZINE HYDROCHLORIDE [Suspect]
     Active Substance: CETIRIZINE HYDROCHLORIDE
     Indication: Urticaria
     Route: 048
  38. CETIRIZINE HYDROCHLORIDE [Suspect]
     Active Substance: CETIRIZINE HYDROCHLORIDE
     Indication: Rheumatoid arthritis
  39. FLUMETHASONE PIVALATE [Suspect]
     Active Substance: FLUMETHASONE PIVALATE
     Indication: Rheumatoid arthritis
     Route: 058
  40. XELJANZ [Suspect]
     Active Substance: TOFACITINIB CITRATE
     Dosage: 5 MG, BID
     Route: 048

REACTIONS (111)
  - Treatment failure [Fatal]
  - C-reactive protein abnormal [Fatal]
  - Lower respiratory tract infection [Fatal]
  - Rheumatoid arthritis [Fatal]
  - Road traffic accident [Fatal]
  - Rash [Fatal]
  - Synovitis [Fatal]
  - Lip dry [Fatal]
  - Drug ineffective [Fatal]
  - Psoriatic arthropathy [Fatal]
  - Malaise [Fatal]
  - Systemic lupus erythematosus [Fatal]
  - Asthma [Fatal]
  - Chest pain [Fatal]
  - Osteoarthritis [Fatal]
  - Paraesthesia [Fatal]
  - Pericarditis [Fatal]
  - Sciatica [Fatal]
  - Musculoskeletal pain [Fatal]
  - Helicobacter infection [Fatal]
  - Pregnancy [Fatal]
  - General physical health deterioration [Fatal]
  - Musculoskeletal stiffness [Fatal]
  - Contusion [Fatal]
  - Dry mouth [Fatal]
  - Irritable bowel syndrome [Fatal]
  - Muscle injury [Fatal]
  - Hepatic enzyme increased [Fatal]
  - Pyrexia [Fatal]
  - Rheumatic fever [Fatal]
  - Rheumatoid factor positive [Fatal]
  - Knee arthroplasty [Fatal]
  - Wound [Fatal]
  - Fibromyalgia [Fatal]
  - Anxiety [Fatal]
  - Hypersensitivity [Fatal]
  - Abdominal pain upper [Fatal]
  - Diarrhoea [Fatal]
  - Blister [Fatal]
  - Gait inability [Fatal]
  - Oedema [Fatal]
  - Hip arthroplasty [Fatal]
  - Confusional state [Fatal]
  - Peripheral swelling [Fatal]
  - Pruritus [Fatal]
  - Discomfort [Fatal]
  - Swelling [Fatal]
  - Ill-defined disorder [Fatal]
  - Night sweats [Fatal]
  - Sinusitis [Fatal]
  - Off label use [Fatal]
  - Condition aggravated [Fatal]
  - Bursitis [Fatal]
  - Gastrointestinal disorder [Fatal]
  - Injury [Fatal]
  - Peripheral venous disease [Fatal]
  - Facet joint syndrome [Fatal]
  - Duodenal ulcer perforation [Fatal]
  - Abdominal discomfort [Fatal]
  - Obesity [Fatal]
  - Sleep disorder due to general medical condition, insomnia type [Fatal]
  - Glossodynia [Fatal]
  - Swollen joint count increased [Fatal]
  - Urticaria [Fatal]
  - Mobility decreased [Fatal]
  - Dizziness [Fatal]
  - Alopecia [Fatal]
  - Hypoaesthesia [Fatal]
  - Fatigue [Fatal]
  - Therapy non-responder [Fatal]
  - Wheezing [Fatal]
  - Hand deformity [Fatal]
  - Weight increased [Fatal]
  - Therapeutic product effect decreased [Fatal]
  - Dyspnoea [Fatal]
  - Arthropathy [Fatal]
  - Pemphigus [Fatal]
  - Product use in unapproved indication [Fatal]
  - Infection [Fatal]
  - Inflammation [Fatal]
  - Liver disorder [Fatal]
  - Autoimmune disorder [Fatal]
  - Arthralgia [Fatal]
  - Anti-cyclic citrullinated peptide antibody positive [Fatal]
  - Infusion related reaction [Fatal]
  - Joint swelling [Fatal]
  - Impaired healing [Fatal]
  - Prescribed overdose [Fatal]
  - Vomiting [Fatal]
  - Drug hypersensitivity [Fatal]
  - Folliculitis [Fatal]
  - Type 2 diabetes mellitus [Fatal]
  - Liver injury [Fatal]
  - Lung disorder [Fatal]
  - Nasopharyngitis [Fatal]
  - Intentional product use issue [Fatal]
  - Asthenia [Fatal]
  - Decreased appetite [Fatal]
  - Headache [Fatal]
  - Hypertension [Fatal]
  - Stomatitis [Fatal]
  - Blood cholesterol increased [Fatal]
  - Lower limb fracture [Fatal]
  - Contraindicated product administered [Fatal]
  - Deep vein thrombosis postoperative [Fatal]
  - Joint range of motion decreased [Fatal]
  - Drug intolerance [Fatal]
  - Maternal exposure during pregnancy [Fatal]
  - Muscle spasms [Fatal]
  - Pain [Fatal]
  - Product use issue [Fatal]
